APPROVED DRUG PRODUCT: TEMSIROLIMUS
Active Ingredient: TEMSIROLIMUS
Strength: 25MG/ML (25MG/ML)
Dosage Form/Route: SOLUTION;INTRAVENOUS
Application: A207383 | Product #001 | TE Code: AP
Applicant: GLAND PHARMA LTD
Approved: Aug 16, 2019 | RLD: No | RS: No | Type: RX